FAERS Safety Report 25240433 (Version 2)
Quarter: 2025Q2

REPORT INFORMATION
  Report Type: Spontaneous
  Country: RU (occurrence: RU)
  Receive Date: 20250425
  Receipt Date: 20250528
  Transmission Date: 20250717
  Serious: Yes (Other)
  Sender: MYLAN
  Company Number: RU-MYLANLABS-2025M1035042

PATIENT
  Age: 40 Year
  Sex: Male
  Weight: 130 kg

DRUGS (5)
  1. CELEBREX [Suspect]
     Active Substance: CELECOXIB
     Indication: Neck pain
     Dosage: 400 MILLIGRAM, QD
     Dates: start: 20250313, end: 20250315
  2. CELEBREX [Suspect]
     Active Substance: CELECOXIB
     Indication: Back pain
  3. VITAMIN B12 [Concomitant]
     Active Substance: CYANOCOBALAMIN
  4. AMINO ACIDS\DEXTROSE\ELECTROLYTES NOS [Concomitant]
     Active Substance: AMINO ACIDS\DEXTROSE\ELECTROLYTES NOS
  5. TOLPERISONE [Concomitant]
     Active Substance: TOLPERISONE

REACTIONS (1)
  - Hypertensive crisis [Unknown]

NARRATIVE: CASE EVENT DATE: 20250301
